FAERS Safety Report 20441295 (Version 1)
Quarter: 2022Q1

REPORT INFORMATION
  Report Type: Report from Study
  Country: US (occurrence: US)
  Receive Date: 20220208
  Receipt Date: 20220208
  Transmission Date: 20220423
  Serious: Yes (Other)
  Sender: FDA-Public Use
  Company Number: US-KOREA IPSEN Pharma-2022-02591

PATIENT
  Sex: Female

DRUGS (1)
  1. SOMATULINE DEPOT [Suspect]
     Active Substance: LANREOTIDE ACETATE
     Indication: Gastroenteropancreatic neuroendocrine tumour disease
     Route: 058
     Dates: start: 201903

REACTIONS (4)
  - Pulmonary thrombosis [Recovering/Resolving]
  - Type 1 diabetes mellitus [Recovering/Resolving]
  - Type 2 diabetes mellitus [Recovering/Resolving]
  - Hepatic neoplasm [Recovering/Resolving]
